FAERS Safety Report 5925268-1 (Version None)
Quarter: 2008Q4

REPORT INFORMATION
  Report Type: 
  Country: None (occurrence: None)
  Receive Date: 20081021
  Receipt Date: 20081017
  Transmission Date: 20090506
  Serious: Yes (Hospitalization, Other)
  Sender: FDA-Public Use
  Company Number: MX-ABBOTT-08P-107-0477920-00

PATIENT
  Sex: Female
  Weight: 67 kg

DRUGS (8)
  1. HUMIRA [Suspect]
     Indication: RHEUMATOID ARTHRITIS
     Route: 058
     Dates: start: 20071128, end: 20080917
  2. METHOTREXATE [Suspect]
     Indication: RHEUMATOID ARTHRITIS
     Route: 048
     Dates: start: 20071128, end: 20080917
  3. DICLOFENAC DIETHYLAMINE [Concomitant]
     Indication: RHEUMATOID ARTHRITIS
     Dates: start: 20070901
  4. ACETAMINOPHEN [Concomitant]
     Indication: RHEUMATOID ARTHRITIS
     Dates: start: 20070301
  5. NITROFURANTOIN [Concomitant]
     Indication: URINARY TRACT INFECTION
     Dates: start: 20071203, end: 20071210
  6. FOLIC ACID [Concomitant]
     Indication: PROPHYLAXIS
     Dates: start: 20071130
  7. LORATADINE [Concomitant]
     Indication: INFLUENZA
     Dates: start: 20071212, end: 20071219
  8. CIPROFLOXACIN HYDROCHLORIDE [Concomitant]
     Indication: GASTROENTERITIS
     Dates: start: 20080325, end: 20080330

REACTIONS (1)
  - PANCREATITIS ACUTE [None]
